FAERS Safety Report 21443534 (Version 4)
Quarter: 2023Q2

REPORT INFORMATION
  Report Type: Spontaneous
  Country: US (occurrence: US)
  Receive Date: 20221012
  Receipt Date: 20230421
  Transmission Date: 20230722
  Serious: Yes (Hospitalization)
  Sender: FDA-Public Use
  Company Number: US-JNJFOC-20221008635

PATIENT
  Age: 87 Year
  Sex: Female

DRUGS (2)
  1. XARELTO [Suspect]
     Active Substance: RIVAROXABAN
     Indication: Atrial fibrillation
     Dosage: DAILY
     Route: 048
     Dates: start: 20210705
  2. XARELTO [Suspect]
     Active Substance: RIVAROXABAN
     Indication: Cerebrovascular accident prophylaxis
     Dosage: EVERY DAY
     Route: 048
     Dates: start: 20210720, end: 20210802

REACTIONS (5)
  - Traumatic intracranial haemorrhage [Recovering/Resolving]
  - Head injury [Recovering/Resolving]
  - Syncope [Unknown]
  - Cognitive disorder [Unknown]
  - Nausea [Unknown]

NARRATIVE: CASE EVENT DATE: 20210701
